FAERS Safety Report 20066740 (Version 6)
Quarter: 2022Q2

REPORT INFORMATION
  Report Type: Report from Study
  Country: CA (occurrence: CA)
  Receive Date: 20211115
  Receipt Date: 20220426
  Transmission Date: 20220721
  Serious: Yes (Hospitalization, Other)
  Sender: FDA-Public Use
  Company Number: CA-BoehringerIngelheim-2021-BI-118144

PATIENT
  Age: 65 Year
  Sex: Male

DRUGS (1)
  1. OFEV [Suspect]
     Active Substance: NINTEDANIB
     Indication: Idiopathic pulmonary fibrosis
     Route: 048
     Dates: start: 20210723, end: 20211012

REACTIONS (14)
  - Fall [Recovering/Resolving]
  - Malaise [Recovered/Resolved]
  - Renal impairment [Not Recovered/Not Resolved]
  - Cardiac failure congestive [Unknown]
  - Acute kidney injury [Unknown]
  - Constipation [Recovering/Resolving]
  - Drug ineffective [Unknown]
  - IgA nephropathy [Unknown]
  - Dyspnoea [Not Recovered/Not Resolved]
  - Gait inability [Not Recovered/Not Resolved]
  - Dysuria [Not Recovered/Not Resolved]
  - Rhinorrhoea [Not Recovered/Not Resolved]
  - Flatulence [Not Recovered/Not Resolved]
  - Somnolence [Not Recovered/Not Resolved]

NARRATIVE: CASE EVENT DATE: 20210728
